FAERS Safety Report 4300852-X (Version None)
Quarter: 2004Q1

REPORT INFORMATION
  Report Type: 
  Country: None (occurrence: None)
  Receive Date: 20040219
  Receipt Date: 20040213
  Transmission Date: 20041129
  Serious: Yes (Hospitalization)
  Sender: FDA-Public Use
  Company Number: MK200402-0129-1

PATIENT
  Age: 61 Year
  Sex: Male

DRUGS (1)
  1. OPT. 350 1X100MLPI FRANCE ASI [Suspect]
     Indication: ARTERIOGRAM
     Dosage: SINGLE USE

REACTIONS (5)
  - BLOOD PRESSURE ABNORMAL [None]
  - CHILLS [None]
  - LOSS OF CONSCIOUSNESS [None]
  - MALAISE [None]
  - PYREXIA [None]
